FAERS Safety Report 7119466-1 (Version None)
Quarter: 2010Q4

REPORT INFORMATION
  Report Type: 
  Country: None (occurrence: None)
  Receive Date: 20101123
  Receipt Date: 20101116
  Transmission Date: 20110411
  Serious: Yes (Hospitalization, Other)
  Sender: FDA-Public Use
  Company Number: CH-PFIZER INC-2010149275

PATIENT
  Age: 18 Year
  Sex: Female
  Weight: 70 kg

DRUGS (7)
  1. LYRICA [Suspect]
     Indication: NEURALGIA
     Dosage: 300 MG, 1X/DAY
     Route: 048
     Dates: start: 20071001
  2. LYRICA [Suspect]
     Indication: NEURITIS
  3. TRYPTIZOL [Suspect]
     Indication: NEURALGIA
     Dosage: 50 MG, 1X/DAY
     Route: 048
     Dates: start: 20071001
  4. TRYPTIZOL [Suspect]
     Indication: NEURITIS
  5. CYMBALTA [Suspect]
     Indication: NEURALGIA
     Dosage: 60 MG, 1X/DAY
     Route: 048
     Dates: start: 20071001
  6. CYMBALTA [Suspect]
     Indication: NEURITIS
  7. CONCOR [Concomitant]
     Indication: POSTURAL ORTHOSTATIC TACHYCARDIA SYNDROME
     Dosage: 10 MG, 1X/DAY
     Route: 048
     Dates: start: 20100930

REACTIONS (2)
  - GALACTORRHOEA [None]
  - POSTURAL ORTHOSTATIC TACHYCARDIA SYNDROME [None]
